FAERS Safety Report 18464819 (Version 1)
Quarter: 2020Q4

REPORT INFORMATION
  Report Type: Report from Study
  Country: DE (occurrence: DE)
  Receive Date: 20201104
  Receipt Date: 20201104
  Transmission Date: 20210114
  Serious: Yes (Death)
  Sender: FDA-Public Use
  Company Number: DE-TAKEDA-2020TUS047114

PATIENT

DRUGS (10)
  1. VITAMIN B12 [Concomitant]
     Active Substance: CYANOCOBALAMIN
     Indication: HYPOVITAMINOSIS
     Dosage: 1000 INTERNATIONAL UNIT, 1/WEEK
     Route: 042
     Dates: start: 20190403
  2. LOPERAMIDE [Concomitant]
     Active Substance: LOPERAMIDE
     Indication: SHORT-BOWEL SYNDROME
     Dosage: 2 MILLIGRAM
     Route: 048
     Dates: start: 20171117, end: 20190320
  3. LAUDANUM [Concomitant]
     Indication: SHORT-BOWEL SYNDROME
     Dosage: 100 GRAM (4 DROPS EVEVRY 6 HOURS), QID
     Route: 048
     Dates: start: 20190403
  4. VITAMIN D3 [Concomitant]
     Active Substance: CHOLECALCIFEROL
     Indication: HYPOVITAMINOSIS
     Dosage: 20000 INTERNATIONAL UNIT, QD
     Route: 048
     Dates: start: 20190403
  5. TEDUGLUTIDE [Suspect]
     Active Substance: TEDUGLUTIDE
     Indication: SHORT-BOWEL SYNDROME
     Dosage: 2.77 MILLIGRAM (0.05 MG/KG), TED DOSES PER WEEK 7
     Route: 065
     Dates: start: 20170515
  6. TEDUGLUTIDE [Suspect]
     Active Substance: TEDUGLUTIDE
     Indication: SHORT-BOWEL SYNDROME
     Dosage: 2.77 MILLIGRAM (0.05 MG/KG), TED DOSES PER WEEK 7
     Route: 065
     Dates: start: 20170515
  7. TEDUGLUTIDE [Suspect]
     Active Substance: TEDUGLUTIDE
     Indication: SHORT-BOWEL SYNDROME
     Dosage: 2.77 MILLIGRAM (0.05 MG/KG), TED DOSES PER WEEK 7
     Route: 065
     Dates: start: 20170515
  8. VITAMIN D3 [Concomitant]
     Active Substance: CHOLECALCIFEROL
     Indication: SHORT-BOWEL SYNDROME
  9. TEDUGLUTIDE [Suspect]
     Active Substance: TEDUGLUTIDE
     Indication: SHORT-BOWEL SYNDROME
     Dosage: 2.77 MILLIGRAM (0.05 MG/KG), TED DOSES PER WEEK 7
     Route: 065
     Dates: start: 20170515
  10. VITAMIN B12 [Concomitant]
     Active Substance: CYANOCOBALAMIN
     Indication: SHORT-BOWEL SYNDROME

REACTIONS (1)
  - Death [Fatal]

NARRATIVE: CASE EVENT DATE: 20200212
